FAERS Safety Report 19012380 (Version 1)
Quarter: 2021Q1

REPORT INFORMATION
  Report Type: Report from Study
  Country: DE (occurrence: DE)
  Receive Date: 20210315
  Receipt Date: 20210315
  Transmission Date: 20210420
  Serious: Yes (Death, Hospitalization, Other)
  Sender: FDA-Public Use
  Company Number: DE-TAKEDA-DE201816353

PATIENT
  Age: 46 Year
  Sex: Male
  Weight: 105 kg

DRUGS (35)
  1. ETORICOXIB. [Concomitant]
     Active Substance: ETORICOXIB
     Indication: ANALGESIC THERAPY
     Dosage: 60 MILLIGRAM, 1 ON DEMAND (CA 1?2/MONTH)
     Route: 048
  2. TRUVADA [Concomitant]
     Active Substance: EMTRICITABINE\TENOFOVIR DISOPROXIL FUMARATE
     Indication: ANTIRETROVIRAL THERAPY
     Dosage: 300 MILLIGRAM, QD (300 MG/200 MG)
     Route: 048
     Dates: start: 20120216
  3. PROPRANOLOL [Concomitant]
     Active Substance: PROPRANOLOL HYDROCHLORIDE
     Indication: HEPATIC CIRRHOSIS
     Dosage: 5 MILLIGRAM, BID
     Route: 048
     Dates: start: 20180403
  4. ARCOXIA [Concomitant]
     Active Substance: ETORICOXIB
     Indication: ANALGESIC THERAPY
     Dosage: 60 MILLIGRAM, ON DEMAND
     Route: 048
     Dates: start: 20121107
  5. CYKLOKAPRON [Concomitant]
     Active Substance: TRANEXAMIC ACID
     Indication: HAEMORRHAGE PROPHYLAXIS
  6. VANCOMYCIN [Concomitant]
     Active Substance: VANCOMYCIN
     Indication: ABDOMINAL INFECTION
     Dosage: UNK
     Route: 042
     Dates: start: 20180421, end: 20180423
  7. AUGMENTIN [Concomitant]
     Active Substance: AMOXICILLIN\CLAVULANATE POTASSIUM
     Indication: ABDOMINAL INFECTION
     Dosage: UNK
     Route: 065
     Dates: start: 20180423, end: 20180424
  8. ADVATE [Suspect]
     Active Substance: ANTIHEMOPHILIC FACTOR, HUMAN RECOMBINANT
     Indication: FACTOR VIII DEFICIENCY
  9. KALETRA [Concomitant]
     Active Substance: LOPINAVIR\RITONAVIR
     Indication: ANTIRETROVIRAL THERAPY
     Dosage: 100 MG/25 MG, BID
     Route: 048
     Dates: start: 20051001, end: 20120215
  10. ATENOLOL. [Concomitant]
     Active Substance: ATENOLOL
     Indication: PORTAL HYPERTENSION
     Dosage: UNK
     Route: 048
     Dates: end: 20151021
  11. IONOSTERIL [Concomitant]
     Indication: FLUID REPLACEMENT
     Dosage: 500 MILLILITER, BID
     Route: 042
     Dates: start: 201804, end: 201804
  12. ADVATE [Suspect]
     Active Substance: ANTIHEMOPHILIC FACTOR, HUMAN RECOMBINANT
     Indication: FACTOR VIII DEFICIENCY
  13. PROPRANOLOL [Concomitant]
     Active Substance: PROPRANOLOL HYDROCHLORIDE
     Indication: HYPERTENSION
  14. METRONIDAZOL [Concomitant]
     Active Substance: METRONIDAZOLE
     Indication: ABDOMINAL INFECTION
     Dosage: 400 MILLIGRAM, BID
     Route: 048
     Dates: start: 20180418, end: 20180423
  15. MERONEM [Concomitant]
     Active Substance: MEROPENEM
     Indication: ABDOMINAL INFECTION
     Dosage: UNK
     Route: 042
     Dates: start: 20180419, end: 20180423
  16. CASPOFUNGIN [Concomitant]
     Active Substance: CASPOFUNGIN
     Indication: ABDOMINAL INFECTION
     Dosage: UNK
     Route: 042
     Dates: start: 20180421, end: 20180423
  17. ADVATE [Suspect]
     Active Substance: ANTIHEMOPHILIC FACTOR, HUMAN RECOMBINANT
     Indication: PROPHYLAXIS
     Dosage: 2000?3000 IE, 2?3/ WEEK
     Route: 065
     Dates: start: 20090901
  18. ADVATE [Suspect]
     Active Substance: ANTIHEMOPHILIC FACTOR, HUMAN RECOMBINANT
     Indication: PROPHYLAXIS
     Dosage: 2000?3000 IE, 2?3/ WEEK
     Route: 065
     Dates: start: 20090901
  19. ADYNOVI [Suspect]
     Active Substance: ANTIHEMOPHILIC FACTOR, HUMAN RECOMBINANT
  20. ADYNOVI [Suspect]
     Active Substance: ANTIHEMOPHILIC FACTOR, HUMAN RECOMBINANT
  21. RALTEGRAVIR. [Concomitant]
     Active Substance: RALTEGRAVIR
     Indication: ANTIRETROVIRAL THERAPY
     Dosage: 400 MILLIGRAM, BID
     Route: 048
     Dates: start: 20120216
  22. PANTOPRAZOL [Concomitant]
     Active Substance: PANTOPRAZOLE SODIUM
     Indication: HAEMORRHAGE PROPHYLAXIS
     Dosage: 500 MILLIGRAM, 2?2?2
     Route: 048
  23. ASPIRIN. [Concomitant]
     Active Substance: ASPIRIN
     Indication: CAROTID ARTERY OCCLUSION
  24. ATENOLOL. [Concomitant]
     Active Substance: ATENOLOL
     Indication: HYPERTENSION
  25. ADVATE [Suspect]
     Active Substance: ANTIHEMOPHILIC FACTOR, HUMAN RECOMBINANT
     Indication: FACTOR VIII DEFICIENCY
  26. EFAVIRENZ. [Concomitant]
     Active Substance: EFAVIRENZ
     Indication: ANTIRETROVIRAL THERAPY
     Dosage: 600 MILLIGRAM, QD
     Route: 048
     Dates: start: 20041001, end: 20120215
  27. PROPRANOLOL [Concomitant]
     Active Substance: PROPRANOLOL HYDROCHLORIDE
     Indication: VARICES OESOPHAGEAL
     Dosage: 80 MILLIGRAM, QD
     Route: 048
     Dates: start: 20151022, end: 201611
  28. LORAZEPAM. [Concomitant]
     Active Substance: LORAZEPAM
     Indication: ANXIETY
  29. ALPRAZOLAM. [Concomitant]
     Active Substance: ALPRAZOLAM
     Indication: ANXIETY
  30. ADVATE [Suspect]
     Active Substance: ANTIHEMOPHILIC FACTOR, HUMAN RECOMBINANT
     Indication: PROPHYLAXIS
     Dosage: 2000?3000 IE, 2?3/ WEEK
     Route: 065
     Dates: start: 20090901
  31. DOCITON [Concomitant]
     Active Substance: PROPRANOLOL HYDROCHLORIDE
     Indication: VARICES OESOPHAGEAL
     Dosage: 10 MILLIGRAM, TID
     Route: 048
     Dates: start: 20111024, end: 20111220
  32. PANTOPRAZOL [Concomitant]
     Active Substance: PANTOPRAZOLE SODIUM
     Indication: GASTRIC ULCER
     Dosage: 40 MILLIGRAM, BID
     Route: 048
     Dates: start: 20151007
  33. ISENTRESS [Concomitant]
     Active Substance: RALTEGRAVIR POTASSIUM
     Indication: PRODUCT USED FOR UNKNOWN INDICATION
  34. ADYNOVI [Suspect]
     Active Substance: ANTIHEMOPHILIC FACTOR, HUMAN RECOMBINANT
  35. ZALEPLON. [Concomitant]
     Active Substance: ZALEPLON
     Indication: INSOMNIA

REACTIONS (5)
  - Gastric ulcer [Recovering/Resolving]
  - Varices oesophageal [Not Recovered/Not Resolved]
  - Hepatic cirrhosis [Fatal]
  - Abdominal infection [Fatal]
  - Hepatic neoplasm [Fatal]

NARRATIVE: CASE EVENT DATE: 20180403
